FAERS Safety Report 15995202 (Version 3)
Quarter: 2019Q2

REPORT INFORMATION
  Report Type: Spontaneous
  Country: US (occurrence: US)
  Receive Date: 20190222
  Receipt Date: 20190429
  Transmission Date: 20190711
  Serious: Yes (Other)
  Sender: FDA-Public Use
  Company Number: US-ENDO PHARMACEUTICALS INC-2019-101719

PATIENT
  Age: 67 Year
  Sex: Male
  Weight: 120.18 kg

DRUGS (10)
  1. FORTESTA [Suspect]
     Active Substance: TESTOSTERONE
     Indication: HYPOGONADISM
     Dosage: 20 MG, DAILY
     Dates: start: 201810
  2. TRAMADOL HYDROCHLORIDE. [Concomitant]
     Active Substance: TRAMADOL HYDROCHLORIDE
     Indication: GROIN PAIN
     Dosage: 250 MG, DAILY; 5 - 50 MG TABLETS
     Dates: start: 2017
  3. GABAPENTIN. [Concomitant]
     Active Substance: GABAPENTIN
     Indication: NEURALGIA
     Dosage: 600 MG, TID
     Route: 065
     Dates: start: 2013
  4. ESOMEPRAZOLE. [Concomitant]
     Active Substance: ESOMEPRAZOLE MAGNESIUM
     Indication: BARRETT^S OESOPHAGUS
  5. PLAQUENIL                          /00072602/ [Concomitant]
     Active Substance: HYDROXYCHLOROQUINE DIPHOSPHATE
     Indication: RHEUMATOID ARTHRITIS
     Dosage: 200 MG, BID
     Route: 065
     Dates: start: 2014
  6. FORTESTA [Suspect]
     Active Substance: TESTOSTERONE
     Dosage: 20 MG, DAILY
  7. ESOMEPRAZOLE. [Concomitant]
     Active Substance: ESOMEPRAZOLE MAGNESIUM
     Indication: GASTROOESOPHAGEAL REFLUX DISEASE
     Dosage: 40 MG, BID
     Route: 048
     Dates: start: 1998
  8. CLONAZEPAM. [Concomitant]
     Active Substance: CLONAZEPAM
     Indication: MUSCLE SPASMS
  9. CLONAZEPAM. [Concomitant]
     Active Substance: CLONAZEPAM
     Indication: BACK PAIN
     Dosage: 1.5 MG, DAILY
     Route: 065
     Dates: start: 2006
  10. SYNTHROID [Concomitant]
     Active Substance: LEVOTHYROXINE SODIUM
     Indication: THYROIDECTOMY
     Dosage: 0.137 MCG, DAILY
     Route: 065
     Dates: start: 2002

REACTIONS (5)
  - Underdose [Unknown]
  - Prostatitis [Not Recovered/Not Resolved]
  - Insomnia [Unknown]
  - Unevaluable event [Unknown]
  - Wrong technique in product usage process [Unknown]

NARRATIVE: CASE EVENT DATE: 2018
